FAERS Safety Report 4668970-4 (Version None)
Quarter: 2005Q2

REPORT INFORMATION
  Report Type: 
  Country: None (occurrence: None)
  Receive Date: 20050523
  Receipt Date: 20041203
  Transmission Date: 20051028
  Serious: Yes (Other)
  Sender: FDA-Public Use
  Company Number: GB-GLAXOSMITHKLINE-B0361178A

PATIENT
  Sex: Female

DRUGS (3)
  1. PAROXETINE HYDROCHLORIDE [Suspect]
     Indication: DEPRESSION
     Route: 065
     Dates: start: 20000301
  2. CANNABIS [Concomitant]
     Route: 065
  3. VENLAFAXINE HCL [Concomitant]
     Route: 065

REACTIONS (11)
  - AGGRESSION [None]
  - ANGER [None]
  - DRUG WITHDRAWAL SYNDROME [None]
  - DYSSTASIA [None]
  - GAIT DISTURBANCE [None]
  - HEADACHE [None]
  - NAUSEA [None]
  - PARAESTHESIA [None]
  - SUICIDE ATTEMPT [None]
  - VOMITING [None]
  - WEIGHT DECREASED [None]
